FAERS Safety Report 8277038-X (Version None)
Quarter: 2012Q2

REPORT INFORMATION
  Report Type: 
  Country: None (occurrence: None)
  Receive Date: 20120412
  Receipt Date: 20120330
  Transmission Date: 20120825
  Serious: Yes (Other)
  Sender: FDA-Public Use
  Company Number: JP-ROCHE-1055965

PATIENT
  Age: 13 Year

DRUGS (1)
  1. PEGASYS [Suspect]
     Indication: PRODUCT USED FOR UNKNOWN INDICATION
     Dosage: DOSAGE IS UNCERTAIN.
     Route: 058

REACTIONS (1)
  - FAILURE TO THRIVE [None]
